FAERS Safety Report 9412146 (Version 1)
Quarter: 2013Q2

REPORT INFORMATION
  Report Type: Spontaneous
  Country: US (occurrence: None)
  Receive Date: 20130506
  Receipt Date: 20130506
  Transmission Date: 20140414
  Serious: Yes (Other)
  Sender: FDA-Public Use
  Company Number: 2013P1004665

PATIENT
  Age: 14 Year
  Sex: Male

DRUGS (3)
  1. MYORISAN 40 MG [Suspect]
     Indication: ACNE
     Route: 048
     Dates: start: 20130216, end: 20130218
  2. TAZORAC 0.1% TOPICAL GEL [Concomitant]
  3. DOXYCYCLINE HYCLATE [Concomitant]

REACTIONS (2)
  - Depression [None]
  - Tearfulness [None]
